FAERS Safety Report 13536122 (Version 2)
Quarter: 2017Q2

REPORT INFORMATION
  Report Type: Spontaneous
  Country: US (occurrence: US)
  Receive Date: 20170511
  Receipt Date: 20170619
  Transmission Date: 20170830
  Serious: No
  Sender: FDA-Public Use
  Company Number: US-PFIZER INC-2017202832

PATIENT
  Age: 67 Year
  Sex: Female

DRUGS (2)
  1. IBRANCE [Suspect]
     Active Substance: PALBOCICLIB
     Dosage: 125 MG, UNK
     Dates: start: 20170426
  2. FASLODEX [Suspect]
     Active Substance: FULVESTRANT
     Dosage: UNK

REACTIONS (3)
  - Fatigue [Unknown]
  - Nausea [Unknown]
  - Pruritus [Unknown]
